FAERS Safety Report 13533746 (Version 1)
Quarter: 2017Q2

REPORT INFORMATION
  Report Type: Spontaneous
  Country: US (occurrence: US)
  Receive Date: 20170510
  Receipt Date: 20170510
  Transmission Date: 20170830
  Serious: No
  Sender: FDA-Public Use
  Company Number: US-SA-2017SA071220

PATIENT
  Age: 68 Year
  Sex: Female

DRUGS (1)
  1. CHILDRENS XYZAL ALLERGY 24HR [Suspect]
     Active Substance: LEVOCETIRIZINE DIHYDROCHLORIDE
     Indication: MULTIPLE ALLERGIES
     Dosage: DOSE IS 2.5-3.75 MG
     Route: 048

REACTIONS (4)
  - Hypersensitivity [Unknown]
  - Sleep disorder [Unknown]
  - Product use issue [Unknown]
  - Nasal pruritus [Unknown]
